FAERS Safety Report 13664610 (Version 4)
Quarter: 2017Q3

REPORT INFORMATION
  Report Type: Spontaneous
  Country: JP (occurrence: JP)
  Receive Date: 20170619
  Receipt Date: 20170810
  Transmission Date: 20171127
  Serious: Yes (Hospitalization, Other)
  Sender: FDA-Public Use
  Company Number: JP-GLAXOSMITHKLINE-JP2017JPN090847

PATIENT
  Age: 68 Year
  Sex: Male
  Weight: 51 kg

DRUGS (2)
  1. VALTREX [Suspect]
     Active Substance: VALACYCLOVIR HYDROCHLORIDE
     Indication: DRUG ERUPTION
     Dosage: UNK
     Route: 048
     Dates: start: 20170520, end: 20170527
  2. CETIRIZINE [Suspect]
     Active Substance: CETIRIZINE HYDROCHLORIDE
     Indication: DRUG ERUPTION
     Dosage: UNK
     Route: 048
     Dates: start: 20170520, end: 20170527

REACTIONS (7)
  - Erythema multiforme [Recovering/Resolving]
  - Lip erosion [Unknown]
  - Pyrexia [Unknown]
  - Lip exfoliation [Unknown]
  - Stevens-Johnson syndrome [Recovering/Resolving]
  - Product use in unapproved indication [Unknown]
  - Drug eruption [Recovering/Resolving]

NARRATIVE: CASE EVENT DATE: 20170520
